FAERS Safety Report 6356078-1 (Version None)
Quarter: 2009Q3

REPORT INFORMATION
  Report Type: 
  Country: None (occurrence: None)
  Receive Date: 20090915
  Receipt Date: 20090911
  Transmission Date: 20100115
  Serious: Yes (Hospitalization)
  Sender: FDA-Public Use
  Company Number: JP-BRISTOL-MYERS SQUIBB COMPANY-14776017

PATIENT
  Age: 88 Year
  Sex: Female

DRUGS (8)
  1. GATIFLOXACIN [Suspect]
     Indication: CYSTITIS
     Route: 048
     Dates: start: 20090904, end: 20090908
  2. VESICARE [Concomitant]
     Dosage: TAKEN AS TABS
     Route: 048
  3. EUGLUCON [Concomitant]
     Dosage: TABS
     Route: 048
  4. AMLODIPINE [Concomitant]
     Dosage: TABS
     Route: 048
  5. ALLORIN [Concomitant]
     Dosage: TABS
     Route: 048
  6. FUROSEMIDE [Concomitant]
     Dosage: TABS
     Route: 048
  7. KETAS [Concomitant]
     Dosage: FORMULATION=CAPSULE
     Route: 048
  8. PROTECADIN [Concomitant]
     Dosage: TABS
     Route: 048

REACTIONS (1)
  - HYPOGLYCAEMIA [None]
